FAERS Safety Report 19764242 (Version 1)
Quarter: 2021Q3

REPORT INFORMATION
  Report Type: Spontaneous
  Country: US (occurrence: US)
  Receive Date: 20210830
  Receipt Date: 20210830
  Transmission Date: 20211014
  Serious: No
  Sender: FDA-Public Use
  Company Number: US-GLAXOSMITHKLINE-US2021AMR182100

PATIENT
  Sex: Male

DRUGS (2)
  1. SUMATRIPTAN SUCCINATE. [Suspect]
     Active Substance: SUMATRIPTAN SUCCINATE
  2. SUMATRIPTAN SUCCINATE. [Suspect]
     Active Substance: SUMATRIPTAN SUCCINATE
     Indication: CLUSTER HEADACHE
     Dosage: UNK, 6 MG

REACTIONS (2)
  - Wrong technique in device usage process [Unknown]
  - Product dose omission issue [Unknown]
